FAERS Safety Report 13028687 (Version 1)
Quarter: 2016Q4

REPORT INFORMATION
  Report Type: Spontaneous
  Country: BR (occurrence: BR)
  Receive Date: 20161214
  Receipt Date: 20161214
  Transmission Date: 20170207
  Serious: Yes (Other)
  Sender: FDA-Public Use
  Company Number: BR-BIOMARINAP-BR-2016-111645

PATIENT
  Age: 45 Year
  Sex: Female
  Weight: 49 kg

DRUGS (1)
  1. ALDURAZYME [Suspect]
     Active Substance: LARONIDASE
     Indication: MUCOPOLYSACCHARIDOSIS I
     Dosage: UNK, QOW
     Route: 041
     Dates: start: 20091020

REACTIONS (5)
  - Cataract [Unknown]
  - Intraocular pressure test abnormal [Recovered/Resolved]
  - Glaucoma [Not Recovered/Not Resolved]
  - Blindness unilateral [Recovered/Resolved]
  - Eye infection [Recovered/Resolved]

NARRATIVE: CASE EVENT DATE: 20120214
